FAERS Safety Report 22536701 (Version 1)
Quarter: 2023Q2

REPORT INFORMATION
  Report Type: Report from Study
  Country: US (occurrence: US)
  Receive Date: 20230608
  Receipt Date: 20230608
  Transmission Date: 20230722
  Serious: Yes (Other)
  Sender: FDA-Public Use
  Company Number: US-KOREA IPSEN Pharma-2023-05852

PATIENT
  Age: 65 Year
  Sex: Male

DRUGS (1)
  1. SOMATULINE DEPOT [Suspect]
     Active Substance: LANREOTIDE ACETATE
     Indication: Neoplasm malignant
     Dosage: 120 MG, EVERY 28 DAYS
     Route: 058
     Dates: start: 201901

REACTIONS (5)
  - Hernia repair [Recovering/Resolving]
  - Skin cancer [Recovering/Resolving]
  - Platelet count decreased [Recovering/Resolving]
  - White blood cell count decreased [Recovering/Resolving]
  - Body temperature abnormal [Recovering/Resolving]

NARRATIVE: CASE EVENT DATE: 20230101
